FAERS Safety Report 5227320-5 (Version None)
Quarter: 2007Q1

REPORT INFORMATION
  Report Type: 
  Country: None (occurrence: None)
  Receive Date: 20070202
  Receipt Date: 20070119
  Transmission Date: 20070707
  Serious: Yes (Death)
  Sender: FDA-Public Use
  Company Number: US-ELI_LILLY_AND_COMPANY-US200701003752

PATIENT
  Age: 46 Year
  Sex: Male

DRUGS (3)
  1. CYMBALTA [Suspect]
     Dosage: 60 MG, UNK
  2. FENTANYL [Concomitant]
  3. CHLOR-TRIMETON [Concomitant]

REACTIONS (1)
  - DRUG TOXICITY [None]
